FAERS Safety Report 11798958 (Version 1)
Quarter: 2015Q4

REPORT INFORMATION
  Report Type: Spontaneous
  Country: US (occurrence: US)
  Receive Date: 20151203
  Receipt Date: 20151203
  Transmission Date: 20160305
  Serious: Yes (Other)
  Sender: FDA-Public Use
  Company Number: US-TEVA-614916USA

PATIENT
  Sex: Male
  Weight: 1.28 kg

DRUGS (14)
  1. TOPIRAMATE. [Suspect]
     Active Substance: TOPIRAMATE
     Indication: PSYCHOGENIC SEIZURE
     Route: 064
  2. CLOBAZAM [Suspect]
     Active Substance: CLOBAZAM
     Indication: PSYCHOGENIC SEIZURE
     Route: 064
  3. PHENYTOIN. [Suspect]
     Active Substance: PHENYTOIN
     Indication: PSYCHOGENIC SEIZURE
     Route: 064
  4. METAMFETAMINE [Concomitant]
     Active Substance: METHAMPHETAMINE
     Route: 064
  5. BROMOCRIPTINE [Concomitant]
     Active Substance: BROMOCRIPTINE
     Route: 064
  6. PROPOFOL. [Suspect]
     Active Substance: PROPOFOL
     Route: 064
  7. RITUXIMAB [Concomitant]
     Active Substance: RITUXIMAB
     Route: 064
  8. MEDROXYPROGESTERONE [Concomitant]
     Active Substance: MEDROXYPROGESTERONE
     Route: 064
  9. LEVETIRACETAM. [Suspect]
     Active Substance: LEVETIRACETAM
     Indication: PSYCHOGENIC SEIZURE
     Route: 064
  10. ZIPRASIDONE. [Concomitant]
     Active Substance: ZIPRASIDONE
     Indication: PSYCHOGENIC SEIZURE
     Route: 064
  11. METHYLPREDNISOLONE. [Concomitant]
     Active Substance: METHYLPREDNISOLONE
     Dosage: 1 GRAM DAILY;
     Route: 064
  12. MIDAZOLAM [Suspect]
     Active Substance: MIDAZOLAM\MIDAZOLAM HYDROCHLORIDE
     Indication: PSYCHOGENIC SEIZURE
     Route: 064
  13. CONJUGATED ESTROGENS [Concomitant]
     Active Substance: ESTROGENS, CONJUGATED
     Route: 064
  14. IMMUNE GLOBULIN [Concomitant]
     Active Substance: HUMAN IMMUNOGLOBULIN G
     Route: 064

REACTIONS (4)
  - Respiratory depression [Recovered/Resolved]
  - Drug withdrawal syndrome [Recovered/Resolved]
  - Muscular weakness [Recovered/Resolved]
  - Foetal exposure during pregnancy [Recovered/Resolved]
